FAERS Safety Report 18695469 (Version 1)
Quarter: 2021Q1

REPORT INFORMATION
  Report Type: Spontaneous
  Country: AR (occurrence: AR)
  Receive Date: 20210104
  Receipt Date: 20210104
  Transmission Date: 20210419
  Serious: No
  Sender: FDA-Public Use
  Company Number: AR-PFIZER INC-2020515655

PATIENT
  Age: 61 Year
  Sex: Female

DRUGS (1)
  1. ENBREL [Suspect]
     Active Substance: ETANERCEPT
     Indication: RHEUMATOID ARTHRITIS
     Dosage: 50 MG, WEEKLY
     Dates: start: 20200307

REACTIONS (3)
  - Device malfunction [Not Recovered/Not Resolved]
  - Needle issue [Not Recovered/Not Resolved]
  - Product dose omission issue [Not Recovered/Not Resolved]
